FAERS Safety Report 6533002-X (Version None)
Quarter: 2010Q1

REPORT INFORMATION
  Report Type: 
  Country: None (occurrence: None)
  Receive Date: 20100111
  Receipt Date: 20100107
  Transmission Date: 20100710
  Serious: Yes (Death)
  Sender: FDA-Public Use
  Company Number: PHHY2010NL00803

PATIENT

DRUGS (1)
  1. ALISKIREN ALI+TAB [Suspect]

REACTIONS (1)
  - CEREBROVASCULAR ACCIDENT [None]
